FAERS Safety Report 12120500 (Version 1)
Quarter: 2016Q1

REPORT INFORMATION
  Report Type: Spontaneous
  Country: CH (occurrence: CH)
  Receive Date: 20160226
  Receipt Date: 20160226
  Transmission Date: 20160526
  Serious: Yes (Hospitalization)
  Sender: FDA-Public Use
  Company Number: CH-MEDA-2016020075

PATIENT
  Age: 76 Year
  Sex: Female

DRUGS (12)
  1. TOREM [Suspect]
     Active Substance: TORSEMIDE
     Route: 048
     Dates: start: 20141126
  2. XANAX 0.25 MG [Concomitant]
     Route: 048
  3. TOREM [Suspect]
     Active Substance: TORSEMIDE
     Dosage: LONG TERM
     Route: 048
  4. CORDARONE [Suspect]
     Active Substance: AMIODARONE HYDROCHLORIDE
     Indication: ATRIAL FIBRILLATION
     Route: 048
     Dates: start: 201501, end: 20150604
  5. NEXIUM 20 MG [Concomitant]
     Route: 048
  6. SINTROM [Concomitant]
     Active Substance: ACENOCOUMAROL
     Route: 048
  7. ZOLDORM 10 MG [Concomitant]
     Route: 048
  8. ASPIRIN CARDIO 100 MG [Concomitant]
     Active Substance: ASPIRIN
     Route: 048
  9. DAFALGAN [Concomitant]
     Active Substance: ACETAMINOPHEN
     Route: 048
  10. MICARDIS [Concomitant]
     Active Substance: TELMISARTAN
     Route: 048
  11. BELOC-ZOK 25 MG [Concomitant]
     Route: 048
  12. TEMESTA EXPIDET 1 MG [Concomitant]
     Route: 048

REACTIONS (2)
  - Hypothyroidism [Recovering/Resolving]
  - Hyponatraemia [Recovered/Resolved]

NARRATIVE: CASE EVENT DATE: 20141120
